FAERS Safety Report 13694545 (Version 1)
Quarter: 2017Q2

REPORT INFORMATION
  Report Type: Spontaneous
  Country: US (occurrence: US)
  Receive Date: 20170627
  Receipt Date: 20170627
  Transmission Date: 20170830
  Serious: No
  Sender: FDA-Public Use
  Company Number: US-GLAXOSMITHKLINE-US2017097902

PATIENT
  Sex: Female

DRUGS (2)
  1. BREO ELLIPTA [Suspect]
     Active Substance: FLUTICASONE FUROATE\VILANTEROL TRIFENATATE
     Indication: ASTHMA
     Dosage: 1 PUFF(S), QD
     Route: 055
  2. BREO ELLIPTA [Suspect]
     Active Substance: FLUTICASONE FUROATE\VILANTEROL TRIFENATATE
     Dosage: 1 PUFF(S), QOD
     Route: 055

REACTIONS (7)
  - Intentional product misuse [Unknown]
  - Underdose [Unknown]
  - Dyspnoea [Recovering/Resolving]
  - Drug ineffective [Recovered/Resolved]
  - Drug prescribing error [Unknown]
  - Drug dispensing error [Unknown]
  - Asthma [Recovered/Resolved]
